FAERS Safety Report 5186268-5 (Version None)
Quarter: 2006Q4

REPORT INFORMATION
  Report Type: 
  Country: None (occurrence: None)
  Receive Date: 20061212
  Receipt Date: 20061130
  Transmission Date: 20070319
  Serious: Yes (Life-Threatening, Hospitalization)
  Sender: FDA-Public Use
  Company Number: 2006-151225-NL

PATIENT
  Age: 63 Year
  Sex: Female

DRUGS (9)
  1. REMERON [Suspect]
  2. REMERON [Suspect]
     Dosage: DF, OVERDOSE
     Dates: start: 20061011
  3. LEXAPRO [Concomitant]
  4. ASPIRIN [Concomitant]
  5. TOPROL-XL [Concomitant]
  6. ZETIA [Concomitant]
  7. LIPITOR [Concomitant]
  8. NIACIN [Concomitant]
  9. VICODIN [Concomitant]

REACTIONS (6)
  - COMA [None]
  - HYPERTENSION [None]
  - INTENTIONAL OVERDOSE [None]
  - RESPIRATORY FAILURE [None]
  - SUICIDE ATTEMPT [None]
  - TACHYCARDIA [None]
